FAERS Safety Report 9912612 (Version 1)
Quarter: 2014Q1

REPORT INFORMATION
  Report Type: Spontaneous
  Country: CH (occurrence: None)
  Receive Date: 20140212
  Receipt Date: 20140212
  Transmission Date: 20141002
  Serious: Yes (Life-Threatening, Other)
  Sender: FDA-Public Use
  Company Number: FK201400376

PATIENT
  Age: 31 Year
  Sex: Male

DRUGS (8)
  1. ONDANSETRON (MANUFACTURER UNKNOWN) (ONDANSETRON) (ONDANSETRON) [Suspect]
     Indication: NAUSEA
     Route: 042
  2. METHADONE (METHADONE) [Suspect]
     Indication: DRUG ABUSE
     Dosage: 50-60MG DAILY
  3. DIPYRONE (METAMIZOLE) (METAMIZOLE SODIUM) [Concomitant]
  4. ESOMEPRAZOLE [Concomitant]
  5. SCOPOLAMINE (HYOSCINE) [Concomitant]
  6. BUTYLBROMIDE [Concomitant]
  7. PARACETAMOL (ACETAMINOPHEN) (PARACETAMOL) [Concomitant]
  8. PETHIDINE (MEPERIDINE) (PETHIDINE) [Concomitant]

REACTIONS (15)
  - Drug interaction [None]
  - Torsade de pointes [None]
  - Stress cardiomyopathy [None]
  - Drug withdrawal syndrome [None]
  - Abdominal pain [None]
  - Electrocardiogram QT prolonged [None]
  - Electrocardiogram T wave inversion [None]
  - Torsade de pointes [None]
  - Grand mal convulsion [None]
  - Hypomagnesaemia [None]
  - Hypokalaemia [None]
  - Electrocardiogram repolarisation abnormality [None]
  - Cardio-respiratory arrest [None]
  - Cardiac disorder [None]
  - Drug administration error [None]
